FAERS Safety Report 5530069-2 (Version None)
Quarter: 2007Q4

REPORT INFORMATION
  Report Type: 
  Country: None (occurrence: None)
  Receive Date: 20071119
  Receipt Date: 20071015
  Transmission Date: 20080405
  Serious: No
  Sender: FDA-Public Use
  Company Number: TPA2007A02115

PATIENT
  Age: 21 Year
  Sex: Male
  Weight: 90.7194 kg

DRUGS (3)
  1. ROZEREM [Suspect]
     Indication: INITIAL INSOMNIA
     Dosage: PER ORAL
     Route: 048
     Dates: start: 20070901, end: 20071003
  2. ZANTAC 150 [Concomitant]
  3. ALEVE [Concomitant]

REACTIONS (3)
  - AMPHETAMINES POSITIVE [None]
  - LACRIMATION INCREASED [None]
  - RHINORRHOEA [None]
